FAERS Safety Report 7655163-1 (Version None)
Quarter: 2011Q3

REPORT INFORMATION
  Report Type: 
  Country: None (occurrence: None)
  Receive Date: 20110729
  Receipt Date: 20110712
  Transmission Date: 20111222
  Serious: Yes (Other)
  Sender: FDA-Public Use
  Company Number: 2009S1005898

PATIENT
  Age: 63 Year
  Sex: Female
  Weight: 188 kg

DRUGS (9)
  1. NASONEX [Concomitant]
  2. MULTI-VIT CRANBERRY [Concomitant]
  3. FELODIPINE [Concomitant]
  4. ASPIRIN [Concomitant]
  5. DIOVAN [Concomitant]
  6. FERROUS SULFATE TAB [Concomitant]
  7. COMBIVENT [Concomitant]
  8. SODIUM PHOSPHATE MONOBASIC MONOHYDRATE AND NAPO4 DIBASIC ANHYDROUS [Suspect]
     Indication: COLONOSCOPY
     Dosage: PO
     Route: 048
     Dates: start: 20061001, end: 20061001
  9. CLARITIN [Concomitant]

REACTIONS (6)
  - DIVERTICULUM [None]
  - HAEMORRHOIDS [None]
  - RENAL FAILURE ACUTE [None]
  - CALCULUS URETERIC [None]
  - PHLEBOLITH [None]
  - RENAL CYST [None]
